FAERS Safety Report 9141666 (Version 2)
Quarter: 2013Q2

REPORT INFORMATION
  Report Type: Spontaneous
  Country: US (occurrence: US)
  Receive Date: 20130305
  Receipt Date: 20130506
  Transmission Date: 20140414
  Serious: Yes (Other)
  Sender: FDA-Public Use
  Company Number: US-AMGEN-USASP2013004373

PATIENT
  Age: 54 Year
  Sex: Female

DRUGS (2)
  1. ENBREL [Suspect]
     Indication: RHEUMATOID ARTHRITIS
     Dosage: 25 MG, 2 TIMES/WK
     Dates: start: 20040101, end: 20130409
  2. CIMZIA [Concomitant]
     Dosage: UNK

REACTIONS (8)
  - Herpes zoster [Not Recovered/Not Resolved]
  - Arthralgia [Not Recovered/Not Resolved]
  - Rheumatoid arthritis [Unknown]
  - Headache [Not Recovered/Not Resolved]
  - Hyperhidrosis [Recovered/Resolved]
  - Nasal oedema [Recovered/Resolved]
  - Swelling face [Recovered/Resolved]
  - Drug effect incomplete [Not Recovered/Not Resolved]
